FAERS Safety Report 6987027-0 (Version None)
Quarter: 2010Q3

REPORT INFORMATION
  Report Type: 
  Country: None (occurrence: None)
  Receive Date: 20100916
  Receipt Date: 20100909
  Transmission Date: 20110219
  Serious: No
  Sender: FDA-Public Use
  Company Number: US-BIOGENIDEC-2010BI031135

PATIENT
  Age: 34 Year
  Sex: Female

DRUGS (4)
  1. AVONEX [Suspect]
     Indication: MULTIPLE SCLEROSIS
     Route: 030
     Dates: start: 20100729, end: 20100804
  2. AVONEX [Suspect]
     Route: 030
     Dates: start: 20100811, end: 20100818
  3. AVONEX [Suspect]
     Route: 030
     Dates: start: 20100825, end: 20100901
  4. AVONEX [Suspect]
     Route: 030
     Dates: start: 20100908

REACTIONS (5)
  - ABDOMINAL DISCOMFORT [None]
  - DIARRHOEA [None]
  - INFLUENZA LIKE ILLNESS [None]
  - INSOMNIA [None]
  - VOMITING [None]
